FAERS Safety Report 9351043 (Version 2)
Quarter: 2013Q3

REPORT INFORMATION
  Report Type: Spontaneous
  Country: US (occurrence: US)
  Receive Date: 20130617
  Receipt Date: 20130826
  Transmission Date: 20140515
  Serious: Yes (Hospitalization, Other)
  Sender: FDA-Public Use
  Company Number: US-009507513-1306USA004352

PATIENT
  Sex: Female
  Weight: 99.77 kg

DRUGS (1)
  1. NUVARING [Suspect]
     Indication: HORMONE THERAPY
     Dosage: UNK, QM
     Route: 067
     Dates: start: 200207, end: 20110616

REACTIONS (38)
  - Cholecystectomy [Unknown]
  - Pulmonary embolism [Recovering/Resolving]
  - Deep vein thrombosis [Unknown]
  - Cardiac disorder [Unknown]
  - Migraine [Recovered/Resolved]
  - Irritable bowel syndrome [Not Recovered/Not Resolved]
  - Incisional hernia repair [Unknown]
  - Appendicectomy [Unknown]
  - Hypercholesterolaemia [Unknown]
  - Stress cardiomyopathy [Recovered/Resolved]
  - Smear cervix abnormal [Unknown]
  - Intervertebral disc protrusion [Not Recovered/Not Resolved]
  - Red blood cell sedimentation rate increased [Unknown]
  - Fall [Unknown]
  - Pain [Not Recovered/Not Resolved]
  - Rhinitis allergic [Unknown]
  - C-reactive protein increased [Unknown]
  - Fibromyalgia [Not Recovered/Not Resolved]
  - Gastrooesophageal reflux disease [Not Recovered/Not Resolved]
  - Hyperlipidaemia [Unknown]
  - Gastrointestinal haemorrhage [Unknown]
  - Herpes zoster [Unknown]
  - Arthralgia [Unknown]
  - Arthralgia [Unknown]
  - Fall [Unknown]
  - Ligament sprain [Unknown]
  - Patellofemoral pain syndrome [Unknown]
  - Neuralgia [Unknown]
  - Complex regional pain syndrome [Unknown]
  - Rosacea [Unknown]
  - Sciatica [Unknown]
  - Vitamin D deficiency [Unknown]
  - Bunion operation [Unknown]
  - Gastritis [Unknown]
  - Plantar fasciitis [Unknown]
  - Back pain [Not Recovered/Not Resolved]
  - Off label use [Unknown]
  - Pulmonary hypertension [Unknown]
